FAERS Safety Report 10467263 (Version 1)
Quarter: 2014Q3

REPORT INFORMATION
  Report Type: Report from Study
  Country: BR (occurrence: BR)
  Receive Date: 20140922
  Receipt Date: 20140922
  Transmission Date: 20150326
  Serious: Yes (Other)
  Sender: FDA-Public Use
  Company Number: PHHY2014BR123282

PATIENT
  Sex: Male
  Weight: 59 kg

DRUGS (2)
  1. EXELON PATCH [Suspect]
     Active Substance: RIVASTIGMINE
     Indication: DEMENTIA ALZHEIMER^S TYPE
     Dosage: 1 DF, QHS (ONE ADHESIVE AT NIGHT)
     Route: 062
     Dates: start: 201405
  2. EUPRESSIN [Concomitant]
     Indication: BLOOD PRESSURE ABNORMAL
     Dosage: 1 DF, QD

REACTIONS (3)
  - Cataract [Recovering/Resolving]
  - Weight decreased [Unknown]
  - Concomitant disease progression [Recovering/Resolving]
